FAERS Safety Report 5895987-4 (Version None)
Quarter: 2008Q3

REPORT INFORMATION
  Report Type: 
  Country: None (occurrence: None)
  Receive Date: 20080828
  Receipt Date: 20080310
  Transmission Date: 20090109
  Serious: Yes (Hospitalization, Other)
  Sender: FDA-Public Use
  Company Number: 168689USA

PATIENT
  Age: 56 Year
  Sex: Female

DRUGS (5)
  1. METOCLOPRAMIDE [Suspect]
     Dosage: 15 MG (5 MG,3 IN 1 D)
     Dates: start: 20080122, end: 20080129
  2. PROPRANOLOL HYDROCHLORIDE [Concomitant]
  3. METHOTREXATE [Concomitant]
  4. FOLIC ACID [Concomitant]
  5. SERETIDE [Concomitant]

REACTIONS (15)
  - AMNESIA [None]
  - BLOOD PRESSURE INCREASED [None]
  - CHEST PAIN [None]
  - COMPLEX PARTIAL SEIZURES [None]
  - DYSPNOEA [None]
  - DYSTONIA [None]
  - GAIT DISTURBANCE [None]
  - HEADACHE [None]
  - HEART RATE INCREASED [None]
  - LOSS OF CONSCIOUSNESS [None]
  - MALAISE [None]
  - MUSCLE SPASMS [None]
  - MUSCLE TWITCHING [None]
  - PARALYSIS [None]
  - TIC [None]
